FAERS Safety Report 8734932 (Version 9)
Quarter: 2013Q1

REPORT INFORMATION
  Report Type: Report from Study
  Country: US (occurrence: US)
  Receive Date: 20120821
  Receipt Date: 20130130
  Transmission Date: 20140127
  Serious: Yes (Death, Hospitalization, Other)
  Sender: FDA-Public Use
  Company Number: US-ACTELION-A-NJ2012-70217

PATIENT
  Age: 59 Year
  Sex: Male

DRUGS (2)
  1. VELETRI [Suspect]
     Indication: PULMONARY ARTERIAL HYPERTENSION
     Dosage: 8 NG/KG, PER MIN
     Route: 041
     Dates: start: 20120709
  2. SILDENAFIL [Concomitant]

REACTIONS (12)
  - Pulmonary arterial hypertension [Fatal]
  - Condition aggravated [Fatal]
  - Dyspnoea [Fatal]
  - Dizziness [Fatal]
  - Right ventricular failure [Recovering/Resolving]
  - Heart rate increased [Recovering/Resolving]
  - Fluid retention [Recovering/Resolving]
  - Hypertension [Recovered/Resolved]
  - Blood glucose abnormal [Recovered/Resolved]
  - Convulsion [Recovered/Resolved]
  - Fluid overload [Not Recovered/Not Resolved]
  - Oedema peripheral [Not Recovered/Not Resolved]
